FAERS Safety Report 16054114 (Version 1)
Quarter: 2019Q1

REPORT INFORMATION
  Report Type: Spontaneous
  Country: CA (occurrence: CA)
  Receive Date: 20190308
  Receipt Date: 20190308
  Transmission Date: 20190418
  Serious: Yes (Other)
  Sender: FDA-Public Use
  Company Number: CA-ASCEND THERAPEUTICS-2063780

PATIENT
  Age: 60 Year
  Sex: Female

DRUGS (24)
  1. ESTROGEL [Suspect]
     Active Substance: ESTRADIOL
     Indication: PRODUCT USED FOR UNKNOWN INDICATION
  2. INFLUENZA VACCINE [Concomitant]
     Active Substance: INFLUENZA VIRUS VACCINE
  3. PREDNISONE. [Suspect]
     Active Substance: PREDNISONE
  4. HYDROCORTISONE, KETOCONAZOLE (CREAM) [Suspect]
     Active Substance: HYDROCORTISONE\KETOCONAZOLE
  5. PULMICORT FLEXHALER [Concomitant]
     Active Substance: BUDESONIDE
  6. NYSTATIN. [Suspect]
     Active Substance: NYSTATIN
     Route: 048
  7. OXYCODONE HYDROCHLORIDE. [Suspect]
     Active Substance: OXYCODONE HYDROCHLORIDE
  8. RIVAROXABAN [Suspect]
     Active Substance: RIVAROXABAN
  9. METAMUCIL (PLANTAGO OVATA0 [Concomitant]
  10. MONTELUKAST SODIUM. [Suspect]
     Active Substance: MONTELUKAST SODIUM
  11. FLUCONAZOLE. [Suspect]
     Active Substance: FLUCONAZOLE
  12. FORMOTEROL FUMARATE [Suspect]
     Active Substance: FORMOTEROL FUMARATE
  13. VITAMINS [Concomitant]
     Active Substance: VITAMINS
  14. FLUTICASONE PROPIONATE. [Suspect]
     Active Substance: FLUTICASONE PROPIONATE
  15. FORADIL [Suspect]
     Active Substance: FORMOTEROL FUMARATE
  16. UMECLIDINIUM BROMIDE (INHALANT) [Suspect]
     Active Substance: UMECLIDINIUM BROMIDE
  17. PNEUMOCOCCAL VACCINE POLYVALENT NOS [Concomitant]
     Active Substance: PNEUMOCOCCAL VACCINE POLYVALENT
  18. COLACE [Suspect]
     Active Substance: DOCUSATE SODIUM
  19. VENTOLIN [Suspect]
     Active Substance: ALBUTEROL SULFATE
  20. ACTONEL [Suspect]
     Active Substance: RISEDRONATE SODIUM
  21. AIROMIR (SALBUTAMOL SULFATE) [Suspect]
     Active Substance: ALBUTEROL SULFATE
  22. BREO ELLIPTA [Suspect]
     Active Substance: FLUTICASONE FUROATE\VILANTEROL TRIFENATATE
  23. OXYNEO (OXYCODONE HYDROCHLORIDE) [Suspect]
     Active Substance: OXYCODONE HYDROCHLORIDE
  24. AMOXICILLIN, CLARITHRONYCIN, ESMOEPRAZOLE MAGNESIUM (AMOXICILLIN TRIHY [Suspect]
     Active Substance: AMOXICILLIN\CLARITHROMYCIN\ESOMEPRAZOLE

REACTIONS (35)
  - Candida infection [Unknown]
  - Chest discomfort [Unknown]
  - Dyspnoea exertional [Unknown]
  - Hysterectomy [Unknown]
  - Wheezing [Unknown]
  - Deep vein thrombosis [Unknown]
  - Chronic sinusitis [Unknown]
  - Cough [Unknown]
  - Lower respiratory tract infection [Unknown]
  - Salpingo-oophorectomy unilateral [Unknown]
  - Sputum increased [Unknown]
  - Eczema [Unknown]
  - Female genital tract fistula [Unknown]
  - Nasal polyps [Unknown]
  - Respiratory symptom [Unknown]
  - Sleep apnoea syndrome [Unknown]
  - Tricuspid valve incompetence [Unknown]
  - Diastolic dysfunction [Unknown]
  - Disease recurrence [Unknown]
  - Dyspnoea [Unknown]
  - Hiatus hernia [Unknown]
  - Diverticulum [Unknown]
  - Emphysema [Unknown]
  - Gastrooesophageal reflux disease [Unknown]
  - Sinusitis [Unknown]
  - Pulmonary embolism [Unknown]
  - Fungal infection [Unknown]
  - Obstructive airways disorder [Unknown]
  - Oedema peripheral [Unknown]
  - Asthma [Unknown]
  - Iron deficiency anaemia [Unknown]
  - Osteoarthritis [Unknown]
  - Osteoporosis [Unknown]
  - Embolism venous [Unknown]
  - Weight increased [Unknown]
